FAERS Safety Report 12207212 (Version 1)
Quarter: 2016Q1

REPORT INFORMATION
  Report Type: Spontaneous
  Country: AU (occurrence: AU)
  Receive Date: 20160324
  Receipt Date: 20160324
  Transmission Date: 20160526
  Serious: Yes (Other)
  Sender: FDA-Public Use
  Company Number: AU-WARNER CHILCOTT, LLC-1049577

PATIENT
  Sex: Female

DRUGS (1)
  1. MACRODANTIN [Suspect]
     Active Substance: NITROFURANTOIN
     Indication: CYSTITIS

REACTIONS (5)
  - Urticaria [Unknown]
  - Neuropathy peripheral [Unknown]
  - Dry eye [Unknown]
  - Hypothyroidism [Unknown]
  - Sjogren^s syndrome [Unknown]
